FAERS Safety Report 17611375 (Version 2)
Quarter: 2020Q2

REPORT INFORMATION
  Report Type: Spontaneous
  Country: TR (occurrence: TR)
  Receive Date: 20200401
  Receipt Date: 20200426
  Transmission Date: 20200713
  Serious: Yes (Death, Other)
  Sender: FDA-Public Use
  Company Number: TR-AMGEN-TURSP2020052350

PATIENT
  Age: 56 Year
  Sex: Male

DRUGS (2)
  1. XGEVA [Suspect]
     Active Substance: DENOSUMAB
     Indication: METASTASES TO BONE
     Dosage: 120 MILLIGRAM, Q4WK
     Route: 058
  2. VANDETANIB. [Suspect]
     Active Substance: VANDETANIB
     Indication: NON-SMALL CELL LUNG CANCER
     Dosage: 300 MILLIGRAM, QD
     Route: 065

REACTIONS (6)
  - Pneumonia [Fatal]
  - Hypoaesthesia [Unknown]
  - Paraesthesia [Unknown]
  - Sepsis [Fatal]
  - Muscle spasms [Unknown]
  - Hypoparathyroidism [Unknown]
